FAERS Safety Report 21974600 (Version 2)
Quarter: 2023Q1

REPORT INFORMATION
  Report Type: Report from Study
  Country: BE (occurrence: BE)
  Receive Date: 20230209
  Receipt Date: 20230213
  Transmission Date: 20230418
  Serious: Yes (Hospitalization)
  Sender: FDA-Public Use
  Company Number: BE-002147023-NVSC2023BE009775

PATIENT
  Age: 36 Year
  Sex: Male
  Weight: 78.5 kg

DRUGS (17)
  1. RINETERKIB [Suspect]
     Active Substance: RINETERKIB
     Indication: Colorectal cancer
     Dosage: 200 MG, QD
     Route: 048
     Dates: start: 20221221, end: 20230113
  2. RINETERKIB [Suspect]
     Active Substance: RINETERKIB
     Dosage: 200 MG, QD
     Route: 048
     Dates: start: 20230117
  3. DABRAFENIB [Suspect]
     Active Substance: DABRAFENIB
     Indication: Colorectal cancer
     Dosage: 150 MG, QD
     Route: 048
     Dates: start: 20221221, end: 20230113
  4. DABRAFENIB [Suspect]
     Active Substance: DABRAFENIB
     Dosage: 150 MG, QD
     Route: 048
     Dates: start: 20230117
  5. TRAMETINIB [Suspect]
     Active Substance: TRAMETINIB
     Indication: Colorectal cancer
     Dosage: 2 MG, QD
     Route: 048
     Dates: start: 20221221, end: 20230113
  6. TRAMETINIB [Suspect]
     Active Substance: TRAMETINIB
     Dosage: 2 MG, QD
     Route: 048
     Dates: start: 20230117
  7. METOCLOPRAMIDE [Concomitant]
     Active Substance: METOCLOPRAMIDE
     Indication: Prophylaxis
     Dosage: UNK
     Route: 065
     Dates: start: 20221222
  8. METOCLOPRAMIDE [Concomitant]
     Active Substance: METOCLOPRAMIDE
     Indication: Prophylaxis of nausea and vomiting
     Dosage: UNK
     Route: 065
     Dates: start: 20230113, end: 20230113
  9. MESALAMINE [Concomitant]
     Active Substance: MESALAMINE
     Indication: Rectal haemorrhage
     Dosage: UNK
     Route: 065
     Dates: start: 202210
  10. ZOLPIDEM [Concomitant]
     Active Substance: ZOLPIDEM TARTRATE
     Indication: Colorectal cancer
     Dosage: UNK
     Route: 065
     Dates: start: 202210
  11. ALPRAZOLAM [Concomitant]
     Active Substance: ALPRAZOLAM
     Indication: Colorectal cancer
     Dosage: UNK
     Route: 065
     Dates: start: 202210
  12. ACETAMINOPHEN [Concomitant]
     Active Substance: ACETAMINOPHEN
     Indication: Colorectal cancer
     Dosage: UNK
     Route: 065
     Dates: start: 202210
  13. ACETAMINOPHEN [Concomitant]
     Active Substance: ACETAMINOPHEN
     Indication: Pyrexia
     Dosage: UNK
     Route: 065
     Dates: start: 20230113, end: 20230113
  14. ACETAMINOPHEN [Concomitant]
     Active Substance: ACETAMINOPHEN
     Dosage: UNK MG, 48 DAYS
     Route: 042
     Dates: start: 20230113, end: 20230114
  15. LOPERAMIDE [Concomitant]
     Active Substance: LOPERAMIDE
     Indication: Diarrhoea
     Dosage: UNK
     Route: 065
     Dates: start: 202211
  16. ALIZAPRIDE HYDROCHLORIDE [Concomitant]
     Active Substance: ALIZAPRIDE HYDROCHLORIDE
     Indication: Prophylaxis of nausea and vomiting
     Dosage: UNK
     Route: 065
     Dates: start: 20230113, end: 20230113
  17. DOXYCYCLINE [Concomitant]
     Active Substance: DOXYCYCLINE
     Indication: Rash maculo-papular
     Dosage: UNK
     Route: 065
     Dates: start: 20230103

REACTIONS (1)
  - Vomiting [Recovered/Resolved]

NARRATIVE: CASE EVENT DATE: 20230113
